FAERS Safety Report 8034453-7 (Version None)
Quarter: 2012Q1

REPORT INFORMATION
  Report Type: 
  Country: None (occurrence: None)
  Receive Date: 20120110
  Receipt Date: 20120103
  Transmission Date: 20120608
  Serious: Yes (Other)
  Sender: FDA-Public Use
  Company Number: US-ABBOTT-12P-163-0889836-00

PATIENT
  Sex: Male

DRUGS (4)
  1. AMITRIPTYLINE HCL [Concomitant]
     Indication: BLOOD PRESSURE
     Dosage: 50MG DAILY QHS
  2. PREVACID [Concomitant]
     Indication: GASTROOESOPHAGEAL REFLUX DISEASE
  3. VERAPAMIL [Concomitant]
     Indication: BLOOD PRESSURE
  4. HUMIRA [Suspect]
     Indication: PSORIASIS
     Dates: start: 20111112

REACTIONS (7)
  - HYPERHIDROSIS [None]
  - PALLOR [None]
  - LOSS OF CONSCIOUSNESS [None]
  - NAUSEA [None]
  - HYPOTENSION [None]
  - INCORRECT DOSE ADMINISTERED [None]
  - ASTHENIA [None]
